FAERS Safety Report 4298736-9 (Version None)
Quarter: 2004Q1

REPORT INFORMATION
  Report Type: 
  Country: None (occurrence: None)
  Receive Date: 20040126
  Receipt Date: 20031103
  Transmission Date: 20041129
  Serious: No
  Sender: FDA-Public Use
  Company Number: USA031050469

PATIENT
  Age: 8 Year
  Sex: Female
  Weight: 45 kg

DRUGS (1)
  1. STRATTERA [Suspect]
     Indication: ABNORMAL BEHAVIOUR
     Dosage: 25 MG/DAY
     Dates: start: 20031020

REACTIONS (8)
  - ABNORMAL BEHAVIOUR [None]
  - DYSKINESIA [None]
  - DYSPEPSIA [None]
  - FATIGUE [None]
  - HEADACHE [None]
  - MUSCLE TWITCHING [None]
  - PAIN IN EXTREMITY [None]
  - SOMNOLENCE [None]
